FAERS Safety Report 5262575-2 (Version None)
Quarter: 2007Q1

REPORT INFORMATION
  Report Type: 
  Country: None (occurrence: None)
  Receive Date: 20070312
  Receipt Date: 20070228
  Transmission Date: 20070707
  Serious: Yes (Hospitalization)
  Sender: FDA-Public Use
  Company Number: JP-ROCHE-485554

PATIENT
  Age: 28 Year
  Sex: Male

DRUGS (1)
  1. TAMIFLU [Suspect]
     Route: 048
     Dates: start: 20070227, end: 20070228

REACTIONS (3)
  - ASTHENIA [None]
  - HYPOAESTHESIA [None]
  - TREMOR [None]
